FAERS Safety Report 5479377-4 (Version None)
Quarter: 2007Q4

REPORT INFORMATION
  Report Type: 
  Country: None (occurrence: None)
  Receive Date: 20071008
  Receipt Date: 20070926
  Transmission Date: 20080405
  Serious: Yes (Other)
  Sender: FDA-Public Use
  Company Number: HQWYE062101NOV06

PATIENT
  Sex: Female
  Weight: 59.02 kg

DRUGS (3)
  1. PREMARIN [Suspect]
     Indication: HORMONE REPLACEMENT THERAPY
     Route: 048
     Dates: start: 19960101, end: 20000214
  2. GERITOL [Concomitant]
     Indication: MEDICAL DIET
     Dosage: 1 TBSP EVERY 1 DAY
     Route: 048
     Dates: start: 19960101
  3. ZYRTEC [Concomitant]
     Indication: SINUS CONGESTION
     Route: 048
     Dates: start: 19950101

REACTIONS (11)
  - ALOPECIA [None]
  - ANXIETY [None]
  - ARTHRALGIA [None]
  - DEPRESSION [None]
  - DIABETES MELLITUS [None]
  - HYPERHIDROSIS [None]
  - INTERSTITIAL LUNG DISEASE [None]
  - PAIN IN EXTREMITY [None]
  - SYSTEMIC LUPUS ERYTHEMATOSUS [None]
  - TRICHORRHEXIS [None]
  - WEIGHT INCREASED [None]
